FAERS Safety Report 6815620-4 (Version None)
Quarter: 2010Q3

REPORT INFORMATION
  Report Type: 
  Country: None (occurrence: None)
  Receive Date: 20100702
  Receipt Date: 20100622
  Transmission Date: 20110219
  Serious: Yes (Disabling, Other)
  Sender: FDA-Public Use
  Company Number: FR-ELI_LILLY_AND_COMPANY-FR201006006830

PATIENT
  Sex: Female

DRUGS (2)
  1. ALIMTA [Suspect]
     Dosage: UNK, UNKNOWN
  2. CISPLATIN [Concomitant]

REACTIONS (1)
  - DEAFNESS BILATERAL [None]
